FAERS Safety Report 8332132-X (Version None)
Quarter: 2012Q2

REPORT INFORMATION
  Report Type: 
  Country: None (occurrence: None)
  Receive Date: 20120502
  Receipt Date: 20120423
  Transmission Date: 20120825
  Serious: Yes (Hospitalization)
  Sender: FDA-Public Use
  Company Number: US-MYLANLABS-2012S1007525

PATIENT
  Age: 72 Year
  Sex: Female

DRUGS (2)
  1. RISPERIDONE [Suspect]
     Route: 048
     Dates: start: 20120404, end: 20120407
  2. RISPERIDONE [Suspect]
     Indication: DEMENTIA ALZHEIMER'S TYPE
     Route: 048
     Dates: start: 20120328, end: 20120401

REACTIONS (4)
  - TREMOR [None]
  - APHASIA [None]
  - SOMNOLENCE [None]
  - GAIT DISTURBANCE [None]
